FAERS Safety Report 7033997-4 (Version None)
Quarter: 2010Q4

REPORT INFORMATION
  Report Type: 
  Country: None (occurrence: None)
  Receive Date: 20101006
  Receipt Date: 20100921
  Transmission Date: 20110411
  Serious: Yes (Hospitalization)
  Sender: FDA-Public Use
  Company Number: 8047504

PATIENT
  Sex: Female
  Weight: 50.5 kg

DRUGS (10)
  1. CERTOLIZUMAB PEGOL (CERTOLIZUMAB PEGOL) [Suspect]
     Indication: RHEUMATOID ARTHRITIS
     Dosage: SUBCUTANEOUS
     Route: 058
     Dates: start: 20090223, end: 20090518
  2. PREDONINE /00016201/ (PREDONINE) [Suspect]
     Indication: RHEUMATOID ARTHRITIS
     Dosage: 10 MG ORAL, 18 MG ORAL
     Dates: start: 20061101, end: 20090101
  3. PREDONINE /00016201/ (PREDONINE) [Suspect]
     Indication: RHEUMATOID ARTHRITIS
     Dosage: 10 MG ORAL, 18 MG ORAL
     Dates: start: 20090101
  4. METHOTREXATE [Suspect]
     Indication: RHEUMATOID ARTHRITIS
     Dosage: 8 MG 1X/WEEK ORAL
     Route: 048
     Dates: start: 20081118, end: 20090527
  5. FOLIC ACID [Concomitant]
  6. ISONIAZID [Concomitant]
  7. PYRIDOXAL PHOSPHATE [Concomitant]
  8. ALENDRONATE SODIUM [Concomitant]
  9. TEPRENONE [Concomitant]
  10. LOXOPROFEN SODIUM [Concomitant]

REACTIONS (14)
  - ARTHRALGIA [None]
  - BACTERIAL PYELONEPHRITIS [None]
  - DEHYDRATION [None]
  - DYSURIA [None]
  - FIBULA FRACTURE [None]
  - INFECTION IN AN IMMUNOCOMPROMISED HOST [None]
  - JOINT SWELLING [None]
  - LIVER FUNCTION TEST ABNORMAL [None]
  - NECROTISING FASCIITIS [None]
  - PSEUDOMONAS TEST POSITIVE [None]
  - SOFT TISSUE INFECTION [None]
  - STAPHYLOCOCCUS TEST POSITIVE [None]
  - UROSEPSIS [None]
  - VOMITING [None]
